FAERS Safety Report 10135236 (Version 2)
Quarter: 2015Q1

REPORT INFORMATION
  Report Type: Other
  Country: US (occurrence: US)
  Receive Date: 20140428
  Receipt Date: 20150212
  Transmission Date: 20150720
  Serious: Yes (Hospitalization, Other)
  Sender: FDA-Public Use
  Company Number: US-GSKPPD-2014GSK036295

PATIENT
  Age: 64 Year
  Sex: Female

DRUGS (3)
  1. AVANDIA [Suspect]
     Active Substance: ROSIGLITAZONE MALEATE
     Indication: DIABETES MELLITUS
     Dosage: DATES OF AVANDIA USE COULD NOT BE CONFIRMED IN RECORDS REVIEWED.
     Route: 048
  2. AVANDAMET [Suspect]
     Active Substance: METFORMIN HYDROCHLORIDE\ROSIGLITAZONE MALEATE
     Indication: DIABETES MELLITUS
     Dosage: 4/1000??DATES OF AVANDAMET USE COULD NOT BE CONFIRMED IN RECORDS REVIEWED
     Route: 048
  3. NORVASC [Concomitant]
     Active Substance: AMLODIPINE BESYLATE

REACTIONS (1)
  - Coronary artery bypass [Recovered/Resolved]

NARRATIVE: CASE EVENT DATE: 20050519
